FAERS Safety Report 9046164 (Version 1)
Quarter: 2013Q1

REPORT INFORMATION
  Report Type: Spontaneous
  Country: MX (occurrence: MX)
  Receive Date: 20130201
  Receipt Date: 20130201
  Transmission Date: 20140127
  Serious: Yes (Other)
  Sender: FDA-Public Use
  Company Number: PHHY2013MX008925

PATIENT
  Age: 83 Year
  Sex: Male

DRUGS (1)
  1. CO-DIOVAN [Suspect]
     Indication: HYPERTENSION
     Dosage: 1 DF, (160/12.5MG) DAILY
     Route: 048
     Dates: start: 200711

REACTIONS (3)
  - Cerebrovascular accident [Unknown]
  - Cardiovascular disorder [Unknown]
  - Vein disorder [Unknown]
